FAERS Safety Report 4647104-6 (Version None)
Quarter: 2005Q2

REPORT INFORMATION
  Report Type: 
  Country: None (occurrence: None)
  Receive Date: 20050331
  Receipt Date: 20050124
  Transmission Date: 20051028
  Serious: No
  Sender: FDA-Public Use
  Company Number: 05P-163-0288078-00

PATIENT
  Age: 78 Year
  Sex: Female
  Weight: 81.6475 kg

DRUGS (2)
  1. HUMIRA [Suspect]
     Indication: RHEUMATOID ARTHRITIS
     Dosage: 40 MG, 1 IN 2 WK, SUBCUTANEOUS
     Route: 058
     Dates: start: 20030101
  2. FLU SHOT [Suspect]
     Indication: INFLUENZA IMMUNISATION
     Dosage: 1 IN 1 Y, INJECTION
     Route: 042
     Dates: start: 20030101, end: 20030101

REACTIONS (4)
  - DRY MOUTH [None]
  - LACRIMATION INCREASED [None]
  - RHINORRHOEA [None]
  - URTICARIA [None]
